FAERS Safety Report 20766955 (Version 1)
Quarter: 2022Q2

REPORT INFORMATION
  Report Type: Spontaneous
  Country: FR (occurrence: FR)
  Receive Date: 20220429
  Receipt Date: 20220429
  Transmission Date: 20220721
  Serious: Yes (Life-Threatening)
  Sender: FDA-Public Use
  Company Number: None

PATIENT
  Age: 19 Year
  Sex: Male
  Weight: 63 kg

DRUGS (16)
  1. ALPRAZOLAM [Suspect]
     Active Substance: ALPRAZOLAM
     Indication: Procedural anxiety
     Dosage: 0.5MG, FREQUENCY TIME 1DAYS, DURATION 1DAYS
     Route: 048
     Dates: start: 20220317, end: 20220317
  2. CISATRACURIUM [Suspect]
     Active Substance: CISATRACURIUM
     Indication: General anaesthesia
     Dosage: STRENGTH:5 MG/ML, 20MG, FREQUENCY TIME 1TOTAL, DURATION 1DAYS
     Route: 042
     Dates: start: 20220317, end: 20220317
  3. LIDOCAINE [Suspect]
     Active Substance: LIDOCAINE
     Indication: Local anaesthesia
     Dosage: DURATION 1DAYS
     Route: 008
     Dates: start: 20220317, end: 20220317
  4. SEVOFLURANE [Suspect]
     Active Substance: SEVOFLURANE
     Indication: General anaesthesia
     Dosage: DURATION 1DAYS
     Route: 055
     Dates: start: 20220317, end: 20220317
  5. KETOPROFEN [Suspect]
     Active Substance: KETOPROFEN
     Indication: Procedural pain
     Dosage: STRENGTH:100 MG/4 ML, 100MG, FREQUENCY TIME 1TOTAL, DURATION 1DAYS
     Route: 042
     Dates: start: 20220317, end: 20220317
  6. REMIFENTANIL [Suspect]
     Active Substance: REMIFENTANIL
     Indication: General anaesthesia
     Dosage: STRENGTH: 2 MG POWDER FOR SOLUTION FOR INJECTION OR INFUSION, DURATION 1DAYS
     Route: 042
     Dates: start: 20220317, end: 20220317
  7. SUFENTANIL [Concomitant]
     Active Substance: SUFENTANIL
  8. ROPIVACAINE HYDROCHLORIDE ANHYDROUS [Concomitant]
     Active Substance: ROPIVACAINE HYDROCHLORIDE ANHYDROUS
  9. NOREPINEPHRINE [Concomitant]
     Active Substance: NOREPINEPHRINE
  10. TRAMADOL HYDROCHLORIDE [Concomitant]
     Active Substance: TRAMADOL HYDROCHLORIDE
  11. CLAVULANIC ACID [Concomitant]
     Active Substance: CLAVULANIC ACID
  12. ACETAMINOPHEN [Concomitant]
     Active Substance: ACETAMINOPHEN
  13. NEFOPAM HYDROCHLORIDE [Concomitant]
     Active Substance: NEFOPAM HYDROCHLORIDE
  14. EPHEDRINE [Concomitant]
     Active Substance: EPHEDRINE
  15. AMOXICILLIN [Concomitant]
     Active Substance: AMOXICILLIN
  16. PROPOFOL [Concomitant]
     Active Substance: PROPOFOL

REACTIONS (1)
  - Hyperthermia malignant [Recovering/Resolving]

NARRATIVE: CASE EVENT DATE: 20220317
